FAERS Safety Report 21614874 (Version 3)
Quarter: 2023Q4

REPORT INFORMATION
  Report Type: Spontaneous
  Country: US (occurrence: US)
  Receive Date: 20221118
  Receipt Date: 20231221
  Transmission Date: 20240110
  Serious: No
  Sender: FDA-Public Use
  Company Number: US-PFIZER INC-202201304599

PATIENT
  Age: 74 Year
  Sex: Female
  Weight: 38.095 kg

DRUGS (2)
  1. PAXLOVID [Suspect]
     Active Substance: NIRMATRELVIR\RITONAVIR
     Indication: COVID-19 treatment
     Dosage: UNK, 2X/DAY (MORNING DOSE, EVENING DOSE)
  2. VALERIAN EXTRACT [Suspect]
     Active Substance: VALERIAN EXTRACT
     Dosage: UNK

REACTIONS (6)
  - Swollen tongue [Unknown]
  - Diarrhoea [Unknown]
  - Weight decreased [Unknown]
  - Nervousness [Unknown]
  - Feeling abnormal [Unknown]
  - Nausea [Unknown]
